FAERS Safety Report 6149399-9 (Version None)
Quarter: 2009Q2

REPORT INFORMATION
  Report Type: 
  Country: None (occurrence: None)
  Receive Date: 20090409
  Receipt Date: 20090331
  Transmission Date: 20091009
  Serious: Yes (Hospitalization, Other)
  Sender: FDA-Public Use
  Company Number: US-BIOGENIDEC-2009BI010282

PATIENT
  Sex: Female
  Weight: 80 kg

DRUGS (5)
  1. TYSABRI [Suspect]
     Indication: MULTIPLE SCLEROSIS
     Route: 042
     Dates: start: 20061201
  2. LAMICTAL [Concomitant]
     Indication: CONVULSION
     Dates: start: 20030101
  3. VICODIN (ACETAMINOPHEN AND HYDROCODONE) [Concomitant]
     Indication: BACK PAIN
     Dates: start: 20060101
  4. LYRICA [Concomitant]
     Indication: BACK PAIN
     Dates: start: 20060101
  5. XANAX [Concomitant]
     Indication: DEPRESSION
     Dates: start: 20090101

REACTIONS (7)
  - CONVULSION [None]
  - GASTRIC BYPASS [None]
  - JUDGEMENT IMPAIRED [None]
  - MEMORY IMPAIRMENT [None]
  - RESTLESS LEGS SYNDROME [None]
  - SLEEP DISORDER [None]
  - TREMOR [None]
